FAERS Safety Report 5599493-6 (Version None)
Quarter: 2007Q4

REPORT INFORMATION
  Report Type: 
  Country: None (occurrence: None)
  Receive Date: 20071231
  Receipt Date: 20070227
  Transmission Date: 20080405
  Serious: Yes (Other)
  Sender: FDA-Public Use
  Company Number: 2007002177

PATIENT
  Age: 55 Year
  Sex: Female
  Weight: 63.1 kg

DRUGS (4)
  1. DIFLUCAN [Suspect]
     Indication: VULVOVAGINAL MYCOTIC INFECTION
     Dosage: (150 MG), ORAL
     Route: 048
     Dates: start: 20070104, end: 20070105
  2. PRINIVIL [Concomitant]
  3. VAGIFEM [Concomitant]
  4. ESTRADERM [Concomitant]

REACTIONS (4)
  - EYELID OEDEMA [None]
  - FACE OEDEMA [None]
  - LIP SWELLING [None]
  - RASH [None]
